FAERS Safety Report 14805480 (Version 5)
Quarter: 2018Q4

REPORT INFORMATION
  Report Type: Report from Study
  Country: TR (occurrence: TR)
  Receive Date: 20180425
  Receipt Date: 20181227
  Transmission Date: 20190204
  Serious: Yes (Hospitalization)
  Sender: FDA-Public Use
  Company Number: TR-PFIZER INC-2018164469

PATIENT
  Age: 57 Year
  Sex: Female
  Weight: 84 kg

DRUGS (10)
  1. AVELUMAB [Suspect]
     Active Substance: AVELUMAB
     Indication: OVARIAN CANCER
     Dosage: 850, EVERY 3 WEEKS
     Route: 042
     Dates: start: 20171205, end: 20180212
  2. ENOXAPARIN [Concomitant]
     Active Substance: ENOXAPARIN
     Indication: THROMBOSIS PROPHYLAXIS
     Dosage: 0.4 ML, 2X/DAY
     Route: 058
     Dates: start: 20171130, end: 20180426
  3. LANSOPRAZOL [Concomitant]
     Active Substance: LANSOPRAZOLE
     Indication: PROPHYLAXIS
     Dosage: 30 MG, 1X/DAY
     Route: 048
     Dates: start: 20171130
  4. OLMESARTAN MEDOXOMIL. [Concomitant]
     Active Substance: OLMESARTAN MEDOXOMIL
     Indication: HYPERTENSION
     Dosage: 20 MG, 2X/DAY
     Route: 048
     Dates: start: 19810101
  5. PARACETAMOL [Concomitant]
     Active Substance: ACETAMINOPHEN
     Indication: PAIN
     Dosage: 500 MG, 2X/DAY
     Dates: start: 20171130
  6. MEGESTROL [Concomitant]
     Active Substance: MEGESTROL
     Indication: ANTI-INFECTIVE THERAPY
     Dosage: 160 MG, 3X/DAY
     Route: 048
     Dates: start: 20171218
  7. LACTULOSE. [Concomitant]
     Active Substance: LACTULOSE
     Indication: CONSTIPATION
     Dosage: 670 MG, 3X/DAY
     Route: 048
     Dates: start: 20180219
  8. CARBOPLATIN. [Suspect]
     Active Substance: CARBOPLATIN
     Indication: OVARIAN CANCER
     Dosage: 600, EVERY 3 WEEKS
     Route: 042
     Dates: start: 20171205
  9. TAXOL [Suspect]
     Active Substance: PACLITAXEL
     Indication: OVARIAN CANCER
     Dosage: 85, WEEKLY
     Route: 042
     Dates: start: 20171205, end: 20180525
  10. CEFUROXIME. [Concomitant]
     Active Substance: CEFUROXIME
     Indication: ANTI-INFECTIVE THERAPY
     Dosage: 500 MG, 2X/DAY
     Route: 048
     Dates: start: 20171130

REACTIONS (1)
  - Wound infection [Recovered/Resolved]

NARRATIVE: CASE EVENT DATE: 20180419
